FAERS Safety Report 8057478-4 (Version None)
Quarter: 2012Q1

REPORT INFORMATION
  Report Type: 
  Country: None (occurrence: None)
  Receive Date: 20120119
  Receipt Date: 20120110
  Transmission Date: 20120608
  Serious: Yes (Hospitalization)
  Sender: FDA-Public Use
  Company Number: JP-MERCK-1201USA01757

PATIENT
  Age: 86 Year
  Sex: Female

DRUGS (11)
  1. ASPARA CA [Concomitant]
     Indication: OSTEOPOROSIS
     Route: 048
     Dates: start: 20100201, end: 20110715
  2. EPEL [Concomitant]
     Indication: SPONDYLOLISTHESIS
     Route: 048
     Dates: start: 20100201, end: 20110715
  3. ELCITONIN [Concomitant]
     Indication: PAIN
     Route: 030
     Dates: start: 20100201, end: 20110715
  4. MEGEIDE [Concomitant]
     Indication: SPONDYLOLISTHESIS
     Route: 030
     Dates: start: 20100201, end: 20110715
  5. HYALOS [Concomitant]
     Indication: OSTEOPOROSIS
     Dosage: INTRA-ARTICULAR
     Route: 065
     Dates: start: 20090702, end: 20090804
  6. KETOPROFEN [Concomitant]
     Indication: SPONDYLOLISTHESIS
     Route: 061
     Dates: start: 20100201, end: 20110715
  7. MUCOSTA [Concomitant]
     Route: 048
     Dates: start: 20100201, end: 20110715
  8. FOSAMAX [Suspect]
     Indication: OSTEOPOROSIS
     Route: 048
     Dates: start: 20080806, end: 20080818
  9. NEUROTROPIN [Concomitant]
     Indication: SPONDYLOLISTHESIS
     Dosage: DAILY DOSE UNKNOWN
     Route: 042
     Dates: start: 20100201, end: 20110715
  10. FOSAMAX [Suspect]
     Route: 048
     Dates: start: 20100201, end: 20110715
  11. LORCAM [Concomitant]
     Indication: SPONDYLOLISTHESIS
     Route: 048
     Dates: start: 20100201, end: 20110715

REACTIONS (1)
  - FEMUR FRACTURE [None]
